FAERS Safety Report 11458161 (Version 1)
Quarter: 2015Q3

REPORT INFORMATION
  Report Type: Spontaneous
  Country: US (occurrence: None)
  Receive Date: 20150903
  Receipt Date: 20150903
  Transmission Date: 20151125
  Serious: Yes (Disabling)
  Sender: FDA-Public Use
  Company Number: None

PATIENT
  Age: 53 Year
  Sex: Female
  Weight: 68.04 kg

DRUGS (5)
  1. NEURONTIN [Suspect]
     Active Substance: GABAPENTIN
     Indication: TRIGEMINAL NEURALGIA
     Route: 048
     Dates: start: 20141105, end: 20150902
  2. AMLODIPINE [Concomitant]
     Active Substance: AMLODIPINE BESYLATE
  3. VITAMIN B12 [Concomitant]
     Active Substance: CYANOCOBALAMIN
  4. VITAMIN D [Concomitant]
     Active Substance: CHOLECALCIFEROL
  5. MELATONIN [Concomitant]
     Active Substance: MELATONIN

REACTIONS (4)
  - Pain in extremity [None]
  - Oedema peripheral [None]
  - Paraesthesia [None]
  - Oedema [None]

NARRATIVE: CASE EVENT DATE: 20150516
